FAERS Safety Report 25041910 (Version 2)
Quarter: 2025Q1

REPORT INFORMATION
  Report Type: Spontaneous
  Country: IN (occurrence: IN)
  Receive Date: 20250305
  Receipt Date: 20250331
  Transmission Date: 20250409
  Serious: Yes (Other)
  Sender: GILEAD
  Company Number: IN-GILEAD-2025-0706121

PATIENT
  Age: 70 Year
  Sex: Female

DRUGS (4)
  1. BIKTARVY [Suspect]
     Active Substance: BICTEGRAVIR SODIUM\EMTRICITABINE\TENOFOVIR ALAFENAMIDE FUMARATE
     Indication: HIV infection
     Route: 065
  2. RIFABUTIN [Concomitant]
     Active Substance: RIFABUTIN
  3. ETHAMBUTOL [Concomitant]
     Active Substance: ETHAMBUTOL HYDROCHLORIDE
  4. PYRIDOXINE [Concomitant]
     Active Substance: PYRIDOXINE

REACTIONS (2)
  - Immune reconstitution inflammatory syndrome [Unknown]
  - Tuberculosis [Unknown]
